FAERS Safety Report 4703347-4 (Version None)
Quarter: 2005Q2

REPORT INFORMATION
  Report Type: 
  Country: None (occurrence: None)
  Receive Date: 20050624
  Receipt Date: 20050414
  Transmission Date: 20051028
  Serious: No
  Sender: FDA-Public Use
  Company Number: 2005BI001542

PATIENT
  Age: 52 Year
  Sex: Female
  Weight: 42.1845 kg

DRUGS (1)
  1. NATALIZUMAB [Suspect]
     Indication: MULTIPLE SCLEROSIS
     Dosage: 300 MG;QM;IV
     Route: 042
     Dates: start: 20050111, end: 20050304

REACTIONS (7)
  - ABASIA [None]
  - DIFFICULTY IN WALKING [None]
  - DIZZINESS [None]
  - FATIGUE [None]
  - FOOD ALLERGY [None]
  - HEADACHE [None]
  - PAIN IN EXTREMITY [None]
